FAERS Safety Report 10020338 (Version 1)
Quarter: 2014Q1

REPORT INFORMATION
  Report Type: Spontaneous
  Country: US (occurrence: US)
  Receive Date: 20140319
  Receipt Date: 20140319
  Transmission Date: 20141002
  Serious: No
  Sender: FDA-Public Use
  Company Number: US-BIOGENIDEC-2014BI022213

PATIENT
  Age: 46 Year
  Sex: Female
  Weight: 56 kg

DRUGS (1)
  1. TECFIDERA [Suspect]
     Indication: PRODUCT USED FOR UNKNOWN INDICATION
     Route: 048
     Dates: start: 20140213, end: 20140301

REACTIONS (5)
  - Asthenia [Unknown]
  - Intentional underdose [Unknown]
  - Secondary progressive multiple sclerosis [Unknown]
  - Diarrhoea [Unknown]
  - Flushing [Unknown]
